FAERS Safety Report 17441606 (Version 5)
Quarter: 2020Q4

REPORT INFORMATION
  Report Type: Report from Study
  Country: US (occurrence: US)
  Receive Date: 20200220
  Receipt Date: 20201115
  Transmission Date: 20210113
  Serious: Yes (Other)
  Sender: FDA-Public Use
  Company Number: NVSC2020US047924

PATIENT
  Sex: Male

DRUGS (2)
  1. ENTRESTO [Suspect]
     Active Substance: SACUBITRIL\VALSARTAN
     Indication: PRODUCT USED FOR UNKNOWN INDICATION
     Dosage: UNK
     Route: 065
  2. FARXIGA [Concomitant]
     Active Substance: DAPAGLIFLOZIN PROPANEDIOL
     Indication: DIABETES MELLITUS
     Dosage: UNK
     Route: 065
     Dates: start: 20201023

REACTIONS (9)
  - Malaise [Unknown]
  - Eye disorder [Unknown]
  - Dizziness [Unknown]
  - Illness [Unknown]
  - Blood pressure increased [Unknown]
  - Cataract [Unknown]
  - Vision blurred [Unknown]
  - Visual impairment [Unknown]
  - Blindness transient [Unknown]

NARRATIVE: CASE EVENT DATE: 2017
